FAERS Safety Report 19789899 (Version 1)
Quarter: 2021Q3

REPORT INFORMATION
  Report Type: Spontaneous
  Country: ES (occurrence: ES)
  Receive Date: 20210905
  Receipt Date: 20210905
  Transmission Date: 20211014
  Serious: Yes (Disabling)
  Sender: FDA-Public Use
  Company Number: ES-TEVA-2021-ES-1947027

PATIENT
  Sex: Female

DRUGS (1)
  1. AJOVY [Suspect]
     Active Substance: FREMANEZUMAB-VFRM
     Indication: MIGRAINE
     Dosage: 225 MONTHLY
     Route: 058

REACTIONS (10)
  - Chest discomfort [Recovered/Resolved]
  - Hypersensitivity [Recovering/Resolving]
  - Limb discomfort [Unknown]
  - Pruritus [Unknown]
  - Suffocation feeling [Recovering/Resolving]
  - Flushing [Recovered/Resolved]
  - Intermenstrual bleeding [Unknown]
  - Respiratory failure [Unknown]
  - Insomnia [Unknown]
  - Flank pain [Unknown]

NARRATIVE: CASE EVENT DATE: 2021
